FAERS Safety Report 10342021 (Version 2)
Quarter: 2014Q3

REPORT INFORMATION
  Report Type: Spontaneous
  Country: CO (occurrence: CO)
  Receive Date: 20140725
  Receipt Date: 20140731
  Transmission Date: 20150326
  Serious: Yes (Other)
  Sender: FDA-Public Use
  Company Number: CO-JNJFOC-20140712643

PATIENT
  Age: 16 Year
  Sex: Male

DRUGS (1)
  1. DUROGESIC [Suspect]
     Active Substance: FENTANYL
     Indication: PAIN
     Route: 062

REACTIONS (4)
  - Mass [Unknown]
  - Pain in extremity [Unknown]
  - Pruritus generalised [Unknown]
  - Erectile dysfunction [Unknown]
